FAERS Safety Report 9343911 (Version 1)
Quarter: 2013Q2

REPORT INFORMATION
  Report Type: Spontaneous
  Country: US (occurrence: US)
  Receive Date: 20130612
  Receipt Date: 20130612
  Transmission Date: 20140414
  Serious: Yes (Other)
  Sender: FDA-Public Use
  Company Number: US-BAYER-2013-069564

PATIENT
  Age: 41 Year
  Sex: Female

DRUGS (6)
  1. YASMIN [Suspect]
  2. OCELLA [Suspect]
  3. METRONIDAZOLE [Concomitant]
  4. CIPROFLOXACIN [Concomitant]
  5. FLAGYL [Concomitant]
  6. MORPHINE [Concomitant]

REACTIONS (1)
  - Pulmonary embolism [Recovering/Resolving]
